FAERS Safety Report 5923242-2 (Version None)
Quarter: 2008Q4

REPORT INFORMATION
  Report Type: 
  Country: None (occurrence: None)
  Receive Date: 20081015
  Receipt Date: 20081001
  Transmission Date: 20090506
  Serious: No
  Sender: FDA-Public Use
  Company Number: DSU-2008-01037

PATIENT
  Age: 73 Year
  Sex: Female

DRUGS (2)
  1. WELCHOL [Suspect]
     Indication: HYPERLIPIDAEMIA
     Dosage: 3750 MG (1875 MG, BID), PER ORAL
     Route: 048
     Dates: start: 20080501, end: 20080627
  2. WELCHOL [Suspect]
     Indication: TYPE 2 DIABETES MELLITUS
     Dosage: 3750 MG (1875 MG, BID), PER ORAL
     Route: 048
     Dates: start: 20080501, end: 20080627

REACTIONS (1)
  - DYSPHAGIA [None]
